FAERS Safety Report 4400538-7 (Version None)
Quarter: 2004Q3

REPORT INFORMATION
  Report Type: 
  Country: None (occurrence: None)
  Receive Date: 20040719
  Receipt Date: 20030530
  Transmission Date: 20050211
  Serious: Yes (Other)
  Sender: FDA-Public Use
  Company Number: JP-BRISTOL-MYERS SQUIBB COMPANY-12290680

PATIENT
  Age: 50 Year
  Sex: Male

DRUGS (6)
  1. ZERIT [Suspect]
     Indication: ACQUIRED IMMUNODEFICIENCY SYNDROME
     Dosage: THERAPY INTERRUPTED 25-APR-2002, RESTARTED 20-MAR-2003 AT 75 MG DAILY.
     Route: 048
     Dates: start: 20010927
  2. VIDEX [Suspect]
     Indication: ACQUIRED IMMUNODEFICIENCY SYNDROME
     Route: 048
     Dates: end: 20020717
  3. STOCRIN CAPS [Suspect]
     Indication: ACQUIRED IMMUNODEFICIENCY SYNDROME
     Route: 048
     Dates: start: 20010927, end: 20020718
  4. RETROVIR [Suspect]
     Indication: ACQUIRED IMMUNODEFICIENCY SYNDROME
     Route: 048
     Dates: start: 20020425, end: 20030320
  5. EPIVIR [Suspect]
     Dosage: THERAPY INTERRUPTED FROM 25-APR-2002 TO 27-MAY-2002
     Route: 048
     Dates: start: 20010927
  6. DIFLUCAN [Concomitant]
     Route: 048
     Dates: start: 20010927

REACTIONS (2)
  - CONDITION AGGRAVATED [None]
  - HEPATITIS B [None]
